FAERS Safety Report 9680513 (Version 3)
Quarter: 2014Q1

REPORT INFORMATION
  Report Type: Spontaneous
  Country: US (occurrence: US)
  Receive Date: 20131111
  Receipt Date: 20140123
  Transmission Date: 20141002
  Serious: Yes (Other)
  Sender: FDA-Public Use
  Company Number: US-PFIZER INC-2013319298

PATIENT
  Age: 71 Year
  Sex: Female

DRUGS (2)
  1. XELJANZ [Suspect]
     Indication: RHEUMATOID ARTHRITIS
     Dosage: 5 MG 1 TABLET, TWICE DAILY
     Route: 048
  2. XELJANZ [Suspect]
     Dosage: 5 MG 1 TABLET, 1X/DAY
     Dates: end: 20131220

REACTIONS (10)
  - Rheumatoid arthritis [Unknown]
  - Myalgia [Unknown]
  - Hyperhidrosis [Unknown]
  - Contusion [Unknown]
  - Mobility decreased [Unknown]
  - Fatigue [Unknown]
  - Angiopathy [Unknown]
  - Cystitis [Unknown]
  - Pain [Unknown]
  - Drug ineffective [Unknown]
